FAERS Safety Report 9895637 (Version 1)
Quarter: 2014Q1

REPORT INFORMATION
  Report Type: Spontaneous
  Country: US (occurrence: US)
  Receive Date: 20140213
  Receipt Date: 20140213
  Transmission Date: 20141002
  Serious: No
  Sender: FDA-Public Use
  Company Number: US-BRISTOL-MYERS SQUIBB COMPANY-17392291

PATIENT
  Sex: Female

DRUGS (2)
  1. ORENCIA [Suspect]
  2. METHOTREXATE [Suspect]
     Dosage: 2 TABLETS
     Dates: start: 201301

REACTIONS (1)
  - Gastric disorder [Unknown]
